FAERS Safety Report 23670702 (Version 1)
Quarter: 2024Q1

REPORT INFORMATION
  Report Type: Spontaneous
  Country: MX (occurrence: MX)
  Receive Date: 20240326
  Receipt Date: 20240326
  Transmission Date: 20240410
  Serious: Yes (Other)
  Sender: FDA-Public Use
  Company Number: MX-BoehringerIngelheim-2024-BI-016516

PATIENT
  Sex: Female

DRUGS (3)
  1. JARDIANCE [Suspect]
     Active Substance: EMPAGLIFLOZIN
     Indication: Latent autoimmune diabetes in adults
  2. METFORMIN [Concomitant]
     Active Substance: METFORMIN HYDROCHLORIDE
     Indication: Latent autoimmune diabetes in adults
  3. INSULIN NOS [Concomitant]
     Active Substance: INSULIN NOS
     Indication: Latent autoimmune diabetes in adults

REACTIONS (2)
  - Renal abscess [Unknown]
  - Intentional product use issue [Unknown]
